FAERS Safety Report 11031062 (Version 1)
Quarter: 2015Q2

REPORT INFORMATION
  Report Type: Spontaneous
  Country: KR (occurrence: None)
  Receive Date: 20150413
  Receipt Date: 20150413
  Transmission Date: 20150821
  Serious: Yes (Other)
  Sender: FDA-Public Use
  Company Number: KR-000041

PATIENT
  Age: 53 Year
  Sex: Male

DRUGS (9)
  1. PENNEL (ALLIUM SATIVUM OIL;BIFENDATE) [Concomitant]
  2. LORAVAN (LORAZEPAM) [Concomitant]
  3. STILNOX (ZOLPIDEM TARTRATE) FILM-COATED TABLET [Concomitant]
     Active Substance: ZOLPIDEM TARTRATE
  4. TWYNSTA (AMLODIPINE BESILATE;TELMISARTAN) [Concomitant]
  5. THIAMINE (THIAMINE HYDROCHLORIDE) [Concomitant]
  6. INDENOL (PROPRANOLOL HYDROCHLORIDE) [Concomitant]
  7. SONOVUE (SULPHUR HEXAFLUORIDE) [Suspect]
     Active Substance: SULFUR HEXAFLUORIDE
     Indication: DIAGNOSTIC PROCEDURE
     Dosage: (NOT OTHERWISE SPECIFIED)
     Route: 042
     Dates: start: 20150203, end: 20150203
  8. STILLEN (EUPATILIN) [Concomitant]
  9. LANSTON LFDT (LANSOPRAZOLE) [Concomitant]

REACTIONS (3)
  - Contrast media reaction [None]
  - Shock [None]
  - Chest discomfort [None]

NARRATIVE: CASE EVENT DATE: 20150203
